FAERS Safety Report 9013648 (Version 2)
Quarter: 2013Q1

REPORT INFORMATION
  Report Type: Spontaneous
  Country: HU (occurrence: HU)
  Receive Date: 20130115
  Receipt Date: 20130117
  Transmission Date: 20140127
  Serious: Yes (Hospitalization, Disabling)
  Sender: FDA-Public Use
  Company Number: PHHY2013HU003014

PATIENT
  Age: 50 Year
  Sex: Male

DRUGS (6)
  1. ACLASTA [Suspect]
     Indication: OSTEOPOROSIS
     Dosage: ONCE A YEAR
     Route: 042
     Dates: start: 20091203
  2. ACLASTA [Suspect]
     Dosage: ONCE A YEAR
     Route: 042
     Dates: start: 20101222
  3. ACLASTA [Suspect]
     Dosage: ONCE A YEAR
     Route: 042
     Dates: start: 20111212
  4. PANTOPRAZOLE SODIUM SESQUIHYDRATE [Concomitant]
     Dosage: 1 DF, DIALY
     Route: 048
  5. FRONTIN [Concomitant]
     Dosage: 2 DF, DAILY
     Route: 048
  6. CITROKALCIUM [Concomitant]
     Dosage: 3 DF DAILY
     Route: 048

REACTIONS (3)
  - Optic atrophy [Recovered/Resolved with Sequelae]
  - Blindness [Unknown]
  - Visual field defect [Unknown]
